FAERS Safety Report 20666118 (Version 1)
Quarter: 2022Q2

REPORT INFORMATION
  Report Type: Spontaneous
  Country: US (occurrence: US)
  Receive Date: 20220403
  Receipt Date: 20220403
  Transmission Date: 20220721
  Serious: Yes (Death, Other)
  Sender: FDA-Public Use
  Company Number: US-SA-SAC20220330001722

PATIENT
  Age: 64 Year
  Sex: Female

DRUGS (1)
  1. ZANTAC [Suspect]
     Active Substance: RANITIDINE HYDROCHLORIDE
     Dosage: UNK UNK, QD
     Dates: start: 201301, end: 201405

REACTIONS (4)
  - Colorectal cancer stage IV [Fatal]
  - Gastrointestinal carcinoma [Fatal]
  - Hepatic cancer stage IV [Fatal]
  - Pancreatic carcinoma stage IV [Fatal]

NARRATIVE: CASE EVENT DATE: 20151107
